FAERS Safety Report 20230102 (Version 2)
Quarter: 2021Q4

REPORT INFORMATION
  Report Type: Spontaneous
  Country: NL (occurrence: NL)
  Receive Date: 20211226
  Receipt Date: 20211230
  Transmission Date: 20220303
  Serious: Yes (Life-Threatening)
  Sender: FDA-Public Use
  Company Number: None

PATIENT
  Age: 63 Year
  Sex: Male

DRUGS (2)
  1. CLOPIDOGREL [Suspect]
     Active Substance: CLOPIDOGREL BISULFATE
     Indication: Transient ischaemic attack
     Dosage: 75 MILLIGRAM DAILY; 1 X PER DAY 1 PIECE,CLOPIDOGREL TABLET 75MG / BRAND NAME NOT SPECIFIED
     Route: 065
     Dates: start: 2021, end: 20211129
  2. BUDESONIDE/FORMOTEROL/SYMBICORT TURBUHALER [Concomitant]
     Dosage: 400/12 MCG/DOSE (MICROGRAMS PER DOSE),BUDESONIDE/FORMOTEROL INHP ??400/12UG/DO / SYMBICORT TURBUHALE

REACTIONS (1)
  - Migraine [Recovered/Resolved]

NARRATIVE: CASE EVENT DATE: 20211101
